FAERS Safety Report 14506915 (Version 2)
Quarter: 2018Q1

REPORT INFORMATION
  Report Type: Spontaneous
  Country: US (occurrence: US)
  Receive Date: 20180208
  Receipt Date: 20180227
  Transmission Date: 20180509
  Serious: Yes (Death)
  Sender: FDA-Public Use
  Company Number: US-MYLANLABS-2018M1007488

PATIENT
  Age: 71 Year
  Sex: Female
  Weight: 113.8 kg

DRUGS (1)
  1. CALCITONIN SALMON. [Suspect]
     Active Substance: CALCITONIN SALMON
     Indication: HYPERCALCAEMIA
     Dosage: 4 U/L, Q12H
     Route: 058
     Dates: start: 20171115, end: 20171124

REACTIONS (2)
  - Incorrect route of drug administration [Recovered/Resolved]
  - Neoplasm malignant [Fatal]

NARRATIVE: CASE EVENT DATE: 20171115
